FAERS Safety Report 9186972 (Version 2)
Quarter: 2012Q4

REPORT INFORMATION
  Report Type: 
  Country: CA (occurrence: CA)
  Receive Date: 20121106
  Receipt Date: 20121116
  Transmission Date: 20130627
  Serious: Yes (Other)
  Sender: FDA-Public Use
  Company Number: CA-BIOMARINP-003182

PATIENT
  Age: 8 Year
  Sex: Male
  Weight: 20.5 kg

DRUGS (2)
  1. NAGLAZYME [Suspect]
     Indication: MUCOPOLYSACCHARIDOSIS VI
     Route: 041
     Dates: start: 200609
  2. RAMIPRIL [Concomitant]
     Indication: PRODUCT USED FOR UNKNOWN INDICATION

REACTIONS (4)
  - Sudden visual loss [Recovered/Resolved]
  - Headache [Recovered/Resolved]
  - Corneal opacity [Unknown]
  - Collateral circulation [Unknown]
